FAERS Safety Report 6479358-8 (Version None)
Quarter: 2009Q4

REPORT INFORMATION
  Report Type: 
  Country: None (occurrence: None)
  Receive Date: 20091207
  Receipt Date: 20090223
  Transmission Date: 20100525
  Serious: No
  Sender: FDA-Public Use
  Company Number: US-AMGEN-KDL335426

PATIENT
  Sex: Female

DRUGS (8)
  1. ENBREL [Suspect]
     Indication: PSORIASIS
     Route: 058
     Dates: start: 20080915
  2. METFORMIN HCL [Concomitant]
     Dates: start: 20080828
  3. POTASSIUM CHLORIDE [Concomitant]
     Dates: start: 20080828
  4. METOPROLOL [Concomitant]
     Dates: start: 20080828
  5. PRAVASTATIN [Concomitant]
     Dates: start: 20080828
  6. HYDROCHLOROTHIAZIDE [Concomitant]
     Dates: start: 20080828
  7. AMLODIPINE [Concomitant]
     Dates: start: 20080828
  8. LEVOTHYROXINE SODIUM [Concomitant]

REACTIONS (4)
  - EPISTAXIS [None]
  - HAEMOPTYSIS [None]
  - SEASONAL ALLERGY [None]
  - THROAT IRRITATION [None]
